FAERS Safety Report 13687915 (Version 2)
Quarter: 2017Q3

REPORT INFORMATION
  Report Type: Report from Study
  Country: None (occurrence: DE)
  Receive Date: 20170626
  Receipt Date: 20170913
  Transmission Date: 20171127
  Serious: Yes (Death, Hospitalization, Other)
  Sender: FDA-Public Use
  Company Number: DE-ABBVIE-17K-062-2019159-00

PATIENT
  Age: 68 Year
  Sex: Female

DRUGS (4)
  1. JANUMET [Concomitant]
     Active Substance: METFORMIN HYDROCHLORIDE\SITAGLIPTIN PHOSPHATE
     Indication: DIABETES MELLITUS
     Dosage: 50/100MG
     Route: 048
  2. CITALOPRAM [Concomitant]
     Active Substance: CITALOPRAM HYDROBROMIDE
     Indication: DEPRESSION
     Route: 048
  3. DUODOPA [Suspect]
     Active Substance: CARBIDOPA\LEVODOPA
     Indication: PARKINSON^S DISEASE
     Dosage: NOT ASCERTAINED, PATIENT HAD BEEN IN THE PRIMARY DUODOPA ADJUSTMENT PHASE
     Route: 050
     Dates: start: 20170621
  4. TORASEMID [Concomitant]
     Active Substance: TORSEMIDE
     Indication: PRODUCT USED FOR UNKNOWN INDICATION
     Route: 048

REACTIONS (10)
  - White blood cell count increased [Unknown]
  - C-reactive protein increased [Unknown]
  - Disturbance in attention [Fatal]
  - Asphyxia [Fatal]
  - Blood lactate dehydrogenase increased [Unknown]
  - General physical health deterioration [Unknown]
  - International normalised ratio increased [Unknown]
  - Aspiration [Fatal]
  - Hospitalisation [Unknown]
  - Fibrin D dimer increased [Unknown]

NARRATIVE: CASE EVENT DATE: 2017
